FAERS Safety Report 13853767 (Version 2)
Quarter: 2017Q4

REPORT INFORMATION
  Report Type: Report from Study
  Country: JP (occurrence: JP)
  Receive Date: 20170809
  Receipt Date: 20171115
  Transmission Date: 20180320
  Serious: Yes (Hospitalization)
  Sender: FDA-Public Use
  Company Number: PHHY2017JP115436

PATIENT
  Age: 63 Year
  Sex: Male
  Weight: 68 kg

DRUGS (31)
  1. ARGATROBAN. [Suspect]
     Active Substance: ARGATROBAN
     Dosage: 20 ML/HR (30MG MIXED WITH NORMAL SALINE 24ML)
     Route: 042
     Dates: start: 20150512, end: 20150512
  2. ARGATROBAN. [Suspect]
     Active Substance: ARGATROBAN
     Dosage: 20 ML/HR (10ML MIXED WITH NORMAL SALINE 40ML)) UNK, UNK
     Route: 042
     Dates: start: 20170330, end: 20170330
  3. NORMAL SALINE [Concomitant]
     Active Substance: SODIUM CHLORIDE
     Dosage: 20 ML, UNK
     Route: 042
     Dates: start: 20170330, end: 20170330
  4. XARELTO [Concomitant]
     Active Substance: RIVAROXABAN
     Indication: PRODUCT USED FOR UNKNOWN INDICATION
     Dosage: 10 MG, QD
     Route: 048
     Dates: start: 20170331
  5. AMLODIPINE [Concomitant]
     Active Substance: AMLODIPINE BESYLATE
     Indication: PRODUCT USED FOR UNKNOWN INDICATION
     Dosage: 5 MG, QD
     Route: 048
  6. LOSARTAN POTASSIUM. [Concomitant]
     Active Substance: LOSARTAN POTASSIUM
     Indication: PRODUCT USED FOR UNKNOWN INDICATION
     Dosage: 25 MG, QD
     Route: 048
  7. ARGATROBAN. [Suspect]
     Active Substance: ARGATROBAN
     Dosage: 2 ML, UNK
     Route: 042
     Dates: start: 20170330, end: 20170330
  8. ARGATROBAN. [Suspect]
     Active Substance: ARGATROBAN
     Dosage: 40 ML/HR (10ML MIXED WITH NORMAL SALINE 40ML)UNK, UNK
     Route: 041
     Dates: start: 20170330, end: 20170330
  9. NORMAL SALINE [Concomitant]
     Active Substance: SODIUM CHLORIDE
     Indication: PRODUCT USED FOR UNKNOWN INDICATION
     Dosage: 20ML/HOUR (50MG MIXED WITH NORMAL SALINE 40ML)
     Route: 042
     Dates: start: 20150512, end: 20150512
  10. NORMAL SALINE [Concomitant]
     Active Substance: SODIUM CHLORIDE
     Dosage: 4 ML, UNK
     Route: 042
     Dates: start: 20170330, end: 20170330
  11. NORMAL SALINE [Concomitant]
     Active Substance: SODIUM CHLORIDE
     Dosage: 40ML/HOUR (10ML MIXED WITH NORMAL SALINE 40ML)
     Route: 042
     Dates: start: 20170330, end: 20170330
  12. ARTIST [Concomitant]
     Active Substance: CARVEDILOL
     Indication: PRODUCT USED FOR UNKNOWN INDICATION
     Dosage: 10 MG, QD
     Route: 048
  13. PILSICAINIDE HYDROCHLORIDE [Concomitant]
     Active Substance: PILSICAINIDE HYDROCHLORIDE
     Indication: PRODUCT USED FOR UNKNOWN INDICATION
     Dosage: 150 MG, QD
     Route: 048
  14. ARGATROBAN. [Suspect]
     Active Substance: ARGATROBAN
     Dosage: 1 ML, UNK
     Route: 042
     Dates: start: 20170330, end: 20170330
  15. NORMAL SALINE [Concomitant]
     Active Substance: SODIUM CHLORIDE
     Dosage: 30ML/HOUR (10ML MIXED WITH NORMAL SALINE 40ML)
     Route: 042
     Dates: start: 20170330, end: 20170330
  16. XARELTO [Concomitant]
     Active Substance: RIVAROXABAN
     Dosage: 10 MG, QD
     Route: 048
  17. ARGATROBAN. [Suspect]
     Active Substance: ARGATROBAN
     Dosage: 2 ML, UNK
     Route: 042
     Dates: start: 20170330, end: 20170330
  18. NORMAL SALINE [Concomitant]
     Active Substance: SODIUM CHLORIDE
     Dosage: 2ML/HOUR (30MG MIXED WITH NORMAL SALINE 24ML)
     Route: 042
     Dates: start: 20150512, end: 20150512
  19. NORMAL SALINE [Concomitant]
     Active Substance: SODIUM CHLORIDE
     Dosage: 20 ML, (10ML MIXED WITH NORMAL SALINE 40ML)
     Route: 042
     Dates: start: 20170330, end: 20170330
  20. ARGATROBAN. [Suspect]
     Active Substance: ARGATROBAN
     Indication: ANTICOAGULANT THERAPY
     Dosage: 20 ML/HR (50MG MIXED WITH NORMAL SALINE 40ML)
     Route: 042
     Dates: start: 20150512, end: 20150512
  21. ARGATROBAN. [Suspect]
     Active Substance: ARGATROBAN
     Dosage: 1 ML, UNK
     Route: 042
     Dates: start: 20170330, end: 20170330
  22. ARGATROBAN. [Suspect]
     Active Substance: ARGATROBAN
     Dosage: 2 ML, UNK
     Route: 042
     Dates: start: 20170330, end: 20170330
  23. NORMAL SALINE [Concomitant]
     Active Substance: SODIUM CHLORIDE
     Dosage: 10 ML, UNK
     Route: 042
     Dates: start: 20170330, end: 20170330
  24. NORMAL SALINE [Concomitant]
     Active Substance: SODIUM CHLORIDE
     Dosage: 20 ML, UNK
     Route: 042
     Dates: start: 20170330, end: 20170330
  25. ARGATROBAN. [Suspect]
     Active Substance: ARGATROBAN
     Dosage: 30 ML/HOUR (10ML MIXED WITH NORMAL SALINE 40ML)UNK, UNK
     Route: 042
     Dates: start: 20170330, end: 20170330
  26. NORMAL SALINE [Concomitant]
     Active Substance: SODIUM CHLORIDE
     Dosage: 20 ML, UNK
     Route: 042
     Dates: start: 20170330, end: 20170330
  27. NORMAL SALINE [Concomitant]
     Active Substance: SODIUM CHLORIDE
     Dosage: 4 ML, UNK
     Route: 042
     Dates: start: 20170330, end: 20170330
  28. BENZBROMARONE [Concomitant]
     Active Substance: BENZBROMARONE
     Indication: PRODUCT USED FOR UNKNOWN INDICATION
     Dosage: 50 MG, QD
     Route: 048
  29. PRAVASTATIN SODIUM. [Concomitant]
     Active Substance: PRAVASTATIN SODIUM
     Indication: PRODUCT USED FOR UNKNOWN INDICATION
     Dosage: 10 MG, QD
     Route: 048
  30. ARGATROBAN. [Suspect]
     Active Substance: ARGATROBAN
     Dosage: 1 ML, UNK
     Route: 042
     Dates: start: 20170330, end: 20170330
  31. HEPARIN SODIUM. [Concomitant]
     Active Substance: HEPARIN SODIUM
     Indication: PRODUCT USED FOR UNKNOWN INDICATION
     Dosage: UNK
     Route: 042
     Dates: start: 20150512

REACTIONS (1)
  - Cerebral infarction [Recovered/Resolved with Sequelae]

NARRATIVE: CASE EVENT DATE: 20170331
